FAERS Safety Report 19362311 (Version 2)
Quarter: 2021Q2

REPORT INFORMATION
  Report Type: Spontaneous
  Country: US (occurrence: US)
  Receive Date: 20210603
  Receipt Date: 20210604
  Transmission Date: 20210717
  Serious: Yes (Other)
  Sender: FDA-Public Use
  Company Number: US-ORG100016242-2021000301

PATIENT
  Age: 15 Year
  Sex: Male

DRUGS (2)
  1. EXPAREL [Suspect]
     Active Substance: BUPIVACAINE
     Dosage: 10 ML OF 1.3%
     Route: 004
  2. BUPIVACAINE WITH EPINEPHRINE [Suspect]
     Active Substance: BUPIVACAINE\EPINEPHRINE
     Dosage: 14 ML
     Route: 004

REACTIONS (4)
  - Hypertension [Recovered/Resolved]
  - Labelled drug-drug interaction medication error [Unknown]
  - Sinus bradycardia [Recovered/Resolved]
  - Sinus arrest [Recovered/Resolved]
